FAERS Safety Report 21795154 (Version 1)
Quarter: 2022Q4

REPORT INFORMATION
  Report Type: Spontaneous
  Country: NL (occurrence: NL)
  Receive Date: 20221229
  Receipt Date: 20221229
  Transmission Date: 20230113
  Serious: Yes (Congenital Anomaly)
  Sender: FDA-Public Use
  Company Number: None

PATIENT
  Sex: Male
  Weight: 2.9 kg

DRUGS (1)
  1. CLOMIPRAMINE [Suspect]
     Active Substance: CLOMIPRAMINE
     Indication: Foetal exposure during pregnancy
     Dosage: MATERNAL DOSE: 75 MG, Q12H FROM 10 JAN 2021 (2 KEER PER DAG 1 STUK) STARTED FROM 10 JAN 2021
     Route: 064

REACTIONS (1)
  - Ventricular septal defect [Not Recovered/Not Resolved]
